FAERS Safety Report 15968767 (Version 3)
Quarter: 2019Q4

REPORT INFORMATION
  Report Type: Spontaneous
  Country: CA (occurrence: CA)
  Receive Date: 20190215
  Receipt Date: 20191118
  Transmission Date: 20200122
  Serious: Yes (Other)
  Sender: FDA-Public Use
  Company Number: CA-PFIZER INC-2019064511

PATIENT
  Age: 38 Year
  Sex: Male

DRUGS (1)
  1. XELJANZ [Suspect]
     Active Substance: TOFACITINIB CITRATE
     Indication: COLITIS ULCERATIVE
     Dosage: 10 MG, TWICE DAILY
     Route: 048
     Dates: start: 20190204, end: 2019

REACTIONS (5)
  - Crohn^s disease [Unknown]
  - Defaecation urgency [Not Recovered/Not Resolved]
  - Secretion discharge [Unknown]
  - Nasopharyngitis [Recovered/Resolved]
  - Haemorrhage [Not Recovered/Not Resolved]

NARRATIVE: CASE EVENT DATE: 201902
